FAERS Safety Report 21559663 (Version 1)
Quarter: 2022Q4

REPORT INFORMATION
  Report Type: Spontaneous
  Country: US (occurrence: None)
  Receive Date: 20221104
  Receipt Date: 20221104
  Transmission Date: 20230112
  Serious: No
  Sender: FDA-Public Use
  Company Number: None

PATIENT

DRUGS (2)
  1. HUMALOG KWIKPEN [Suspect]
     Active Substance: INSULIN LISPRO
     Dosage: OTHER STRENGTH : 100MU/ML;?
  2. LANTUS SOLOSTAR [Suspect]
     Active Substance: INSULIN GLARGINE

REACTIONS (2)
  - Drug dispensed to wrong patient [None]
  - Wrong product administered [None]
